FAERS Safety Report 10043760 (Version 1)
Quarter: 2014Q1

REPORT INFORMATION
  Report Type: Spontaneous
  Country: US (occurrence: None)
  Receive Date: 20140327
  Receipt Date: 20140327
  Transmission Date: 20141002
  Serious: Yes (Other)
  Sender: FDA-Public Use
  Company Number: None

PATIENT
  Age: 75 Year
  Sex: Female
  Weight: 0 kg

DRUGS (1)
  1. PROLIA [Suspect]
     Indication: OSTEOPOROSIS
     Dosage: 60 MG, EVERY 6 MONTHS, SUBCUTANEOUS
     Route: 058
     Dates: start: 201309, end: 201403

REACTIONS (3)
  - Rash [None]
  - Mood swings [None]
  - Arthralgia [None]
